FAERS Safety Report 24535838 (Version 1)
Quarter: 2024Q4

REPORT INFORMATION
  Report Type: Report from Study
  Country: ES (occurrence: ES)
  Receive Date: 20241022
  Receipt Date: 20241022
  Transmission Date: 20250115
  Serious: Yes (Other)
  Sender: ABBVIE
  Company Number: ES-ABBVIE-5797203

PATIENT
  Age: 73 Year
  Sex: Female

DRUGS (5)
  1. CARBIDOPA\LEVODOPA [Suspect]
     Active Substance: CARBIDOPA\LEVODOPA
     Indication: Parkinson^s disease
     Dosage: 240 MG/ML + 12 MG/ML SOLUCION PARA PERFUSION
     Route: 058
     Dates: start: 20240506, end: 20240619
  2. CARBIDOPA\LEVODOPA [Suspect]
     Active Substance: CARBIDOPA\LEVODOPA
     Dosage: SPEED OF 0.64ML/H AND THE NIGHT WITH 0.60ML/H, 240 MG/ML + 12 MG/ML SOLUCION PARA PERFUSION
     Route: 058
     Dates: start: 202406, end: 202406
  3. NEUPRO [Concomitant]
     Active Substance: ROTIGOTINE
     Indication: Product used for unknown indication
  4. NEUPRO [Concomitant]
     Active Substance: ROTIGOTINE
     Indication: Product used for unknown indication
  5. AUGMENTIN [Concomitant]
     Active Substance: AMOXICILLIN\CLAVULANATE POTASSIUM
     Indication: Product used for unknown indication
     Dosage: 875
     Route: 048
     Dates: start: 20240613, end: 20240627

REACTIONS (12)
  - Erythema [Recovering/Resolving]
  - Inflammation [Recovering/Resolving]
  - Diplopia [Recovered/Resolved]
  - Tremor [Not Recovered/Not Resolved]
  - Hallucination [Recovered/Resolved]
  - Puncture site erythema [Recovering/Resolving]
  - Nodule [Not Recovered/Not Resolved]
  - Cellulitis [Unknown]
  - Malaise [Unknown]
  - Tremor [Recovering/Resolving]
  - Infusion site cyst [Recovering/Resolving]
  - Nodule [Unknown]

NARRATIVE: CASE EVENT DATE: 20240101
